FAERS Safety Report 7747443-6 (Version None)
Quarter: 2011Q3

REPORT INFORMATION
  Report Type: 
  Country: None (occurrence: None)
  Receive Date: 20110909
  Receipt Date: 20110831
  Transmission Date: 20111222
  Serious: Yes (Hospitalization, Other)
  Sender: FDA-Public Use
  Company Number: 2007JP004018

PATIENT
  Age: 65 Year
  Sex: Female
  Weight: 56.8 kg

DRUGS (6)
  1. BASEN (VOGLIBOSE) [Concomitant]
  2. BOUFUUTSUUSHOUSAN (HERBAL EXTRACT NOS) [Concomitant]
  3. TSUUDOUSAN (HERBAL EXTRACT NOS) [Concomitant]
  4. PROGRAF [Suspect]
     Indication: RHEUMATOID ARTHRITIS
     Dosage: 3 MG, UID/QD, ORAL; 1.5 MG, UID/QD, ORAL
     Route: 048
     Dates: start: 20060330, end: 20070516
  5. PROGRAF [Suspect]
     Indication: RHEUMATOID ARTHRITIS
     Dosage: 3 MG, UID/QD, ORAL; 1.5 MG, UID/QD, ORAL
     Route: 048
     Dates: start: 20070517, end: 20070530
  6. MAGNESIUM OXIDE [Concomitant]

REACTIONS (3)
  - CONDITION AGGRAVATED [None]
  - DIABETES MELLITUS INADEQUATE CONTROL [None]
  - HEPATITIS C [None]
